FAERS Safety Report 18715445 (Version 2)
Quarter: 2021Q1

REPORT INFORMATION
  Report Type: Spontaneous
  Country: GB (occurrence: GB)
  Receive Date: 20210108
  Receipt Date: 20210118
  Transmission Date: 20210419
  Serious: Yes (Other)
  Sender: FDA-Public Use
  Company Number: GB-SUN PHARMACEUTICAL INDUSTRIES LTD-2020RR-274410

PATIENT
  Age: 83 Year
  Sex: Female
  Weight: 45 kg

DRUGS (26)
  1. ATORVASTATIN [Suspect]
     Active Substance: ATORVASTATIN
     Indication: HYPERCHOLESTEROLAEMIA
     Dosage: UNK
     Route: 065
     Dates: start: 20200923
  2. MIRABEGRON [Concomitant]
     Active Substance: MIRABEGRON
     Indication: PRODUCT USED FOR UNKNOWN INDICATION
     Dosage: 1 DOSAGE FORM, QD
     Route: 065
     Dates: start: 20201203
  3. BRINZOLAMIDE [Concomitant]
     Active Substance: BRINZOLAMIDE
     Indication: PRODUCT USED FOR UNKNOWN INDICATION
     Dosage: 2 GTT DROPS, QD, BOTH EYES
     Route: 065
     Dates: start: 20200306
  4. BRINZOLAMIDE [Concomitant]
     Active Substance: BRINZOLAMIDE
     Dosage: 2 GTT DROPS, QD (DROP INTO BOTH EYES TO LOW)
     Route: 065
     Dates: start: 20200306
  5. ADCAL [Concomitant]
     Indication: PRODUCT USED FOR UNKNOWN INDICATION
     Dosage: 1 DF, BID (SUCK OR CHEW 1 TABLET A DAY TO STRENGHT)
     Route: 065
     Dates: start: 20200306
  6. DOCUSATE SODIUM. [Concomitant]
     Active Substance: DOCUSATE SODIUM
     Indication: CONSTIPATION
     Dosage: 4 DOSAGE FORM, QD
     Route: 065
     Dates: start: 20201209
  7. CARMELLOSE [Concomitant]
     Active Substance: CARBOXYMETHYLCELLULOSE
     Dosage: 8 GTT DROPS, QD (BOTH EYES ONE DROP)
     Route: 065
     Dates: start: 20200306
  8. LANSOPRAZOLE. [Concomitant]
     Active Substance: LANSOPRAZOLE
     Indication: PRODUCT USED FOR UNKNOWN INDICATION
     Dosage: 2 DOSAGE FORM, QD, TO REDUCE STOMACH ...
     Route: 065
     Dates: start: 20200306
  9. ISPAGHULA EXTRACT\PSYLLIUM [Concomitant]
     Active Substance: HERBALS\PLANTAGO OVATA SEED\PLANTAGO SEED
     Indication: PRODUCT USED FOR UNKNOWN INDICATION
     Dosage: 2 DOSAGE FORM, QD
     Route: 065
     Dates: start: 20200818
  10. HYDROCORTISONE. [Concomitant]
     Active Substance: HYDROCORTISONE
     Indication: PRODUCT USED FOR UNKNOWN INDICATION
     Dosage: APPLY THINLY. CONTAINS A MILD STEROID.
     Route: 065
     Dates: start: 20201016, end: 20201115
  11. CLOPIDOGREL [Concomitant]
     Active Substance: CLOPIDOGREL BISULFATE
     Indication: ANTICOAGULANT THERAPY
     Dosage: 1 DOSAGE FORM, QD (ONE TO BE TAKEN ONCE A DAY TO THIN THE BLOOD)
     Route: 065
     Dates: start: 20200923, end: 20201127
  12. LATANOPROST. [Concomitant]
     Active Substance: LATANOPROST
     Indication: PRODUCT USED FOR UNKNOWN INDICATION
     Dosage: 1 GTT DROPS, QD, AT NIGHT TO BOTH EYES
     Route: 065
     Dates: start: 20200818
  13. CLOTRIMAZOLE. [Concomitant]
     Active Substance: CLOTRIMAZOLE
     Indication: PRODUCT USED FOR UNKNOWN INDICATION
     Dosage: 1 DOSAGE FORM, QD, AT NIGHT
     Route: 067
     Dates: start: 20201001, end: 20201002
  14. DESUNIN [Concomitant]
     Active Substance: CHOLECALCIFEROL
     Indication: PRODUCT USED FOR UNKNOWN INDICATION
     Dosage: 1 DOSAGE FORM, QD, FOR THE TREATMENT OR PREVENTION ...
     Route: 065
     Dates: start: 20200618
  15. TIBOLONE [Concomitant]
     Active Substance: TIBOLONE
     Indication: PRODUCT USED FOR UNKNOWN INDICATION
     Dosage: 1 DOSAGE FORM, QD
     Route: 065
     Dates: start: 20200818
  16. ATENOLOL. [Concomitant]
     Active Substance: ATENOLOL
     Indication: PRODUCT USED FOR UNKNOWN INDICATION
     Dosage: 2 DOSAGE FORM, QD
     Route: 065
     Dates: start: 20200818
  17. LATANOPROST. [Concomitant]
     Active Substance: LATANOPROST
     Dosage: 2 GTT DROPS, QD (1 DROP AT NIGHT TO BOTH EYES)
     Route: 065
     Dates: start: 20200818
  18. ATORVASTATIN [Suspect]
     Active Substance: ATORVASTATIN
     Indication: BLOOD CHOLESTEROL INCREASED
     Dosage: 40 MILLIGRAM, QD
     Route: 065
     Dates: start: 20200923
  19. ADCAL [Concomitant]
     Dosage: 2 DOSAGE FORM, QD (TO STRENGHT)
     Route: 065
     Dates: start: 20200306
  20. EDOXABAN [Concomitant]
     Active Substance: EDOXABAN TOSYLATE
     Indication: ANTICOAGULANT THERAPY
     Dosage: 1 DOSAGE FORM, QD (THIS IS AN ANTICOA^)
     Route: 065
     Dates: start: 20201127
  21. NITROFURANTOIN. [Concomitant]
     Active Substance: NITROFURANTOIN
     Indication: PRODUCT USED FOR UNKNOWN INDICATION
     Dosage: 2 DOSAGE FORM, QD, FOR THREE DAYS TO TREAT A ...
     Route: 065
     Dates: start: 20201001, end: 20201004
  22. CARMELLOSE [Concomitant]
     Active Substance: CARBOXYMETHYLCELLULOSE
     Indication: PRODUCT USED FOR UNKNOWN INDICATION
     Dosage: 4 GTT DROPS, QD, BOTH EYES
     Route: 065
     Dates: start: 20200306
  23. RAMIPRIL. [Concomitant]
     Active Substance: RAMIPRIL
     Indication: PRODUCT USED FOR UNKNOWN INDICATION
     Dosage: 1 DOSAGE FORM, QD
     Route: 065
     Dates: start: 20200306
  24. MEBEVERINE HYDROCHLORIDE [Concomitant]
     Active Substance: MEBEVERINE HYDROCHLORIDE
     Indication: PRODUCT USED FOR UNKNOWN INDICATION
     Dosage: 3 DOSAGE FORM, QD (FOR IRRITABLE)
     Route: 065
     Dates: start: 20200306
  25. CARBOCISTEINE [Concomitant]
     Active Substance: CARBOCYSTEINE
     Indication: PRODUCT USED FOR UNKNOWN INDICATION
     Dosage: 4 DOSAGE FORM, QD, AS A MAINTENANCE ...
     Route: 065
     Dates: start: 20200818
  26. FORTISIP [Concomitant]
     Active Substance: CARBOHYDRATES\FATTY ACIDS\MINERALS\PROTEIN\VITAMINS
     Indication: PRODUCT USED FOR UNKNOWN INDICATION
     Dosage: 2 DOSAGE FORM, QD
     Route: 065
     Dates: start: 20201207

REACTIONS (2)
  - Acute hepatic failure [Recovering/Resolving]
  - Liver function test abnormal [Unknown]

NARRATIVE: CASE EVENT DATE: 20201210
